FAERS Safety Report 6448272-6 (Version None)
Quarter: 2009Q4

REPORT INFORMATION
  Report Type: 
  Country: None (occurrence: None)
  Receive Date: 20091120
  Receipt Date: 20091109
  Transmission Date: 20100525
  Serious: Yes (Death)
  Sender: FDA-Public Use
  Company Number: US-MYLANLABS-2009S1006733

PATIENT
  Age: 69 Year
  Sex: Male
  Weight: 52.16 kg

DRUGS (28)
  1. FENTANYL CITRATE [Suspect]
     Indication: PAIN
     Dosage: CHANGED Q72H
     Route: 062
     Dates: start: 20080901, end: 20080903
  2. FENTANYL CITRATE [Suspect]
     Indication: OSTEOARTHRITIS
     Dosage: CHANGED Q72H
     Route: 062
     Dates: start: 20080901, end: 20080903
  3. PRILOSEC [Concomitant]
  4. CALTRATE [Concomitant]
  5. CRANBERRY /01512301/ [Concomitant]
  6. DILAUDID [Concomitant]
  7. OXYCODONE HCL [Concomitant]
  8. LIPITOR [Concomitant]
  9. VASOTEC [Concomitant]
  10. TOPROL-XL [Concomitant]
  11. VITAMIN B-12 [Concomitant]
  12. COLACE [Concomitant]
  13. SENNA [Concomitant]
  14. MIRALAX [Concomitant]
  15. ZINC [Concomitant]
  16. VITAMIN E [Concomitant]
  17. FOSAMAX [Concomitant]
  18. AVODART [Concomitant]
  19. FLOMAX /01280302/ [Concomitant]
  20. AMBIEN [Concomitant]
  21. TRAMADOL [Concomitant]
  22. VICODIN [Concomitant]
  23. TYLENOL W/ CODEINE [Concomitant]
  24. NEURONTIN [Concomitant]
  25. ARICEPT [Concomitant]
  26. BABY ASPIRIN [Concomitant]
  27. LIDODERM [Concomitant]
  28. BEE POLLEN [Concomitant]

REACTIONS (6)
  - CARDIAC DISORDER [None]
  - FLUID RETENTION [None]
  - MULTI-ORGAN FAILURE [None]
  - RESPIRATORY ARREST [None]
  - SOMNOLENCE [None]
  - VOMITING [None]
